FAERS Safety Report 5396784-9 (Version None)
Quarter: 2007Q3

REPORT INFORMATION
  Report Type: 
  Country: None (occurrence: None)
  Receive Date: 20070725
  Receipt Date: 20070717
  Transmission Date: 20080115
  Serious: Yes (Hospitalization)
  Sender: FDA-Public Use
  Company Number: US-ROCHE-507992

PATIENT
  Sex: Female

DRUGS (1)
  1. ZENAPAX [Suspect]
     Indication: MULTIPLE SCLEROSIS
     Route: 065
     Dates: start: 20070101, end: 20070406

REACTIONS (3)
  - ALOPECIA [None]
  - LIPODYSTROPHY ACQUIRED [None]
  - RASH ERYTHEMATOUS [None]
